FAERS Safety Report 9247885 (Version 1)
Quarter: 2013Q2

REPORT INFORMATION
  Report Type: Spontaneous
  Country: RU (occurrence: RU)
  Receive Date: 20130423
  Receipt Date: 20130423
  Transmission Date: 20140414
  Serious: Yes (Other)
  Sender: FDA-Public Use
  Company Number: RU-BRISTOL-MYERS SQUIBB COMPANY-18796664

PATIENT
  Age: 23 Year
  Sex: Male

DRUGS (1)
  1. HYDREA [Suspect]
     Indication: THALASSAEMIA BETA
     Dates: start: 2011

REACTIONS (4)
  - Central nervous system lesion [Unknown]
  - Back pain [Unknown]
  - Hypoaesthesia [Unknown]
  - Blood iron increased [Unknown]
